FAERS Safety Report 4348951-0 (Version None)
Quarter: 2004Q2

REPORT INFORMATION
  Report Type: 
  Country: None (occurrence: None)
  Receive Date: 20040423
  Receipt Date: 20040401
  Transmission Date: 20050107
  Serious: Yes (Death)
  Sender: FDA-Public Use
  Company Number: A0441914A

PATIENT
  Age: 48 Year
  Sex: Male

DRUGS (8)
  1. TOPOTECAN HCL CAPSULE [Suspect]
     Indication: SMALL CELL LUNG CANCER STAGE UNSPECIFIED
     Dosage: 1 MG, ORAL
     Route: 048
     Dates: start: 20031006, end: 20031024
  2. CISPLATIN [Suspect]
     Indication: SMALL CELL LUNG CANCER STAGE UNSPECIFIED
     Dosage: 138 MG, INTRAVENOUS
     Route: 042
     Dates: start: 20031117, end: 20031117
  3. ETOPOSIDE [Suspect]
     Indication: SMALL CELL LUNG CANCER STAGE UNSPECIFIED
     Dosage: 270 MG, INTRAVENOUS
     Route: 042
     Dates: start: 20031117, end: 20031119
  4. RADIOTHERAPY [Suspect]
     Indication: SMALL CELL LUNG CANCER STAGE UNSPECIFIED
     Dosage: 3 GRAY
     Dates: start: 20031006, end: 20031024
  5. ONDANSETRON HCL [Concomitant]
  6. ... [Concomitant]
  7. PERCOCET [Concomitant]
  8. FILGRASTIM [Concomitant]

REACTIONS (20)
  - BACTERIAL INFECTION [None]
  - BLOOD CREATINE PHOSPHOKINASE INCREASED [None]
  - BLOOD PRESSURE DECREASED [None]
  - CEREBROVASCULAR ACCIDENT [None]
  - FEELING COLD [None]
  - HAEMATOMA [None]
  - HAEMOGLOBIN DECREASED [None]
  - HAEMORRHAGE [None]
  - HYPOAESTHESIA [None]
  - MOBILITY DECREASED [None]
  - MUSCLE NECROSIS [None]
  - PAIN [None]
  - PLATELET COUNT DECREASED [None]
  - PULSE ABSENT [None]
  - RESPIRATORY ARREST [None]
  - SEPSIS [None]
  - SHOCK [None]
  - SWELLING [None]
  - VASCULAR OCCLUSION [None]
  - WHITE BLOOD CELL COUNT DECREASED [None]
